FAERS Safety Report 5022017-9 (Version None)
Quarter: 2006Q2

REPORT INFORMATION
  Report Type: 
  Country: None (occurrence: None)
  Receive Date: 20060609
  Receipt Date: 20060602
  Transmission Date: 20061013
  Serious: Yes (Hospitalization)
  Sender: FDA-Public Use
  Company Number: BE-SP-2006-01344

PATIENT
  Age: 79 Year
  Sex: Male
  Weight: 70 kg

DRUGS (13)
  1. IMMUCYST [Suspect]
     Indication: BLADDER CANCER
     Dosage: SUSPENSION, 50 ML
     Route: 043
     Dates: start: 20050223
  2. IMMUCYST [Suspect]
     Dosage: SUSPENSION, 50 ML
     Route: 043
     Dates: start: 20050223
  3. IMMUCYST [Suspect]
     Route: 043
     Dates: start: 20050302
  4. IMMUCYST [Suspect]
     Route: 043
     Dates: start: 20050302
  5. IMMUCYST [Suspect]
     Route: 043
     Dates: start: 20050309
  6. IMMUCYST [Suspect]
     Route: 043
     Dates: start: 20050309
  7. IMMUCYST [Suspect]
     Route: 043
     Dates: start: 20050316
  8. IMMUCYST [Suspect]
     Route: 043
     Dates: start: 20050316
  9. IMMUCYST [Suspect]
     Route: 043
     Dates: start: 20050323
  10. IMMUCYST [Suspect]
     Route: 043
     Dates: start: 20050323
  11. IMMUCYST [Suspect]
     Route: 043
     Dates: start: 20050330
  12. IMMUCYST [Suspect]
     Route: 043
     Dates: start: 20050330
  13. NICOTIBINE (ISONIAZID) [Concomitant]
     Indication: EPIDIDYMITIS

REACTIONS (2)
  - CYSTITIS [None]
  - EPIDIDYMITIS [None]
